FAERS Safety Report 9392885 (Version 1)
Quarter: 2013Q3

REPORT INFORMATION
  Report Type: Spontaneous
  Country: US (occurrence: US)
  Receive Date: 20130710
  Receipt Date: 20130710
  Transmission Date: 20140515
  Serious: No
  Sender: FDA-Public Use
  Company Number: US-PFIZER INC-2013202427

PATIENT
  Age: 70 Year
  Sex: Female

DRUGS (3)
  1. XELJANZ [Suspect]
     Indication: RHEUMATOID ARTHRITIS
     Dosage: 5 MG, 1X/DAY
     Route: 048
     Dates: start: 201305, end: 20130617
  2. METHOTREXATE SODIUM [Suspect]
     Indication: SJOGREN^S SYNDROME
     Dosage: 20 MG, 1X/DAY
  3. MEDROL [Concomitant]
     Indication: RHEUMATOID ARTHRITIS
     Dosage: 4 MG, 1X/DAY

REACTIONS (4)
  - Intentional drug misuse [Unknown]
  - Off label use [Unknown]
  - Local swelling [Recovering/Resolving]
  - Feeling abnormal [Unknown]
